FAERS Safety Report 18870330 (Version 2)
Quarter: 2021Q1

REPORT INFORMATION
  Report Type: Report from Study
  Country: US (occurrence: US)
  Receive Date: 20210209
  Receipt Date: 20210304
  Transmission Date: 20210420
  Serious: Yes (Other)
  Sender: FDA-Public Use
  Company Number: US-GILEAD-2021-0516500

PATIENT
  Sex: Male
  Weight: 64.4 kg

DRUGS (9)
  1. TENOFOVIR ALAFENAMIDE [Suspect]
     Active Substance: TENOFOVIR ALAFENAMIDE
     Indication: HEPATITIS B
     Dosage: 25 MG, QD
     Route: 048
     Dates: start: 20200305
  2. PROGRAF [Concomitant]
     Active Substance: TACROLIMUS
     Dosage: 50 MG, BID
     Dates: start: 20200813
  3. XANAX [Concomitant]
     Active Substance: ALPRAZOLAM
  4. LISINOPRIL. [Concomitant]
     Active Substance: LISINOPRIL
     Dosage: 10 MG, QD
     Dates: start: 20200714
  5. SYMBICORT [Concomitant]
     Active Substance: BUDESONIDE\FORMOTEROL FUMARATE DIHYDRATE
  6. METOPROLOL. [Concomitant]
     Active Substance: METOPROLOL
     Dosage: 50 MG, BID
     Dates: start: 20200408
  7. ZORTRESS [Concomitant]
     Active Substance: EVEROLIMUS
     Dosage: 0.75 MG
     Dates: start: 20200923
  8. ENTECAVIR. [Concomitant]
     Active Substance: ENTECAVIR
  9. FOLIC ACID. [Concomitant]
     Active Substance: FOLIC ACID

REACTIONS (1)
  - No adverse event [Recovered/Resolved]
